FAERS Safety Report 6786877-3 (Version None)
Quarter: 2010Q2

REPORT INFORMATION
  Report Type: 
  Country: None (occurrence: None)
  Receive Date: 20100621
  Receipt Date: 20100607
  Transmission Date: 20101027
  Serious: Yes (Hospitalization)
  Sender: FDA-Public Use
  Company Number: 2010PV000018

PATIENT
  Age: 23 Year
  Sex: Male
  Weight: 51 kg

DRUGS (13)
  1. DEPOCYTE (CYTARABINE) [Suspect]
     Indication: NEOPLASM MALIGNANT
     Dosage: 50 MG
     Dates: start: 20100322, end: 20100520
  2. VINCRISTINE [Concomitant]
  3. DOXORUBICIN HCL [Concomitant]
  4. 1-ASP [Concomitant]
  5. ENCORTON [Concomitant]
  6. MILURIT [Concomitant]
  7. CONTROLOC [Concomitant]
  8. CLEXANE [Concomitant]
  9. KETONAL [Concomitant]
  10. MYDOCALM [Concomitant]
  11. ZOFRAN [Concomitant]
  12. HEPATIL [Concomitant]
  13. BONEFOS [Concomitant]

REACTIONS (4)
  - HEADACHE [None]
  - LOSS OF CONSCIOUSNESS [None]
  - NAUSEA [None]
  - VOMITING [None]
